FAERS Safety Report 7252539-1 (Version None)
Quarter: 2011Q1

REPORT INFORMATION
  Report Type: 
  Country: None (occurrence: None)
  Receive Date: 20110129
  Receipt Date: 20100312
  Transmission Date: 20110831
  Serious: No
  Sender: FDA-Public Use
  Company Number: US-ABBOTT-09P-163-0590401-00

PATIENT
  Sex: Female
  Weight: 56.296 kg

DRUGS (3)
  1. ZEGERID [Concomitant]
     Indication: GASTROOESOPHAGEAL REFLUX DISEASE
  2. HUMIRA [Suspect]
     Indication: RHEUMATOID ARTHRITIS
     Dates: start: 20050101
  3. UNKNOWN MEDICATION [Concomitant]
     Indication: HYPERTENSION

REACTIONS (10)
  - DYSPHAGIA [None]
  - HYPOPHAGIA [None]
  - LICHEN PLANUS [None]
  - DYSGEUSIA [None]
  - ORAL LICHEN PLANUS [None]
  - OESOPHAGEAL STENOSIS [None]
  - ORAL FUNGAL INFECTION [None]
  - WEIGHT DECREASED [None]
  - AGEUSIA [None]
  - DIARRHOEA [None]
